FAERS Safety Report 18097603 (Version 1)
Quarter: 2020Q3

REPORT INFORMATION
  Report Type: Spontaneous
  Country: US (occurrence: US)
  Receive Date: 20200731
  Receipt Date: 20200731
  Transmission Date: 20201103
  Serious: Yes (Other)
  Sender: FDA-Public Use
  Company Number: US-MYLANLABS-2020M1067621

PATIENT
  Age: 32 Year
  Sex: Male

DRUGS (14)
  1. LAMOTRIGINE. [Suspect]
     Active Substance: LAMOTRIGINE
     Indication: TEMPORAL LOBE EPILEPSY
     Dosage: 100 MILLIGRAM, TID THREE TIMES A DAY; ON...
     Route: 065
  2. LACOSAMIDE. [Suspect]
     Active Substance: LACOSAMIDE
     Indication: TEMPORAL LOBE EPILEPSY
     Dosage: 100 MILLIGRAM, TID THREE TIMES A..
     Route: 065
  3. LAMOTRIGINE. [Suspect]
     Active Substance: LAMOTRIGINE
     Indication: TEMPORAL LOBE EPILEPSY
     Dosage: 200 MILLIGRAM ON DAY THREE, AFTE..
     Route: 048
  4. LEVETIRACETAM. [Suspect]
     Active Substance: LEVETIRACETAM
     Indication: FOCAL DYSCOGNITIVE SEIZURES
  5. CLONAZEPAM. [Suspect]
     Active Substance: CLONAZEPAM
     Indication: TEMPORAL LOBE EPILEPSY
     Dosage: 1 MILLIGRAM, TID
     Route: 065
  6. CLONAZEPAM. [Suspect]
     Active Substance: CLONAZEPAM
     Indication: FOCAL DYSCOGNITIVE SEIZURES
     Dosage: 0.5 MILLIGRAM, TID THREE TIMES A DAY...
     Route: 065
  7. LACOSAMIDE. [Suspect]
     Active Substance: LACOSAMIDE
     Indication: TEMPORAL LOBE EPILEPSY
     Dosage: 150 MILLIGRAMON DAY THREE, AFTER THE COMPLETION OF DIAGNOSTIC EVALUATION
     Route: 042
  8. LAMOTRIGINE. [Suspect]
     Active Substance: LAMOTRIGINE
     Indication: FOCAL DYSCOGNITIVE SEIZURES
  9. LEVETIRACETAM. [Suspect]
     Active Substance: LEVETIRACETAM
     Indication: FOCAL DYSCOGNITIVE SEIZURES
  10. LACOSAMIDE. [Suspect]
     Active Substance: LACOSAMIDE
     Indication: FOCAL DYSCOGNITIVE SEIZURES
  11. LAMOTRIGINE. [Suspect]
     Active Substance: LAMOTRIGINE
     Indication: FOCAL DYSCOGNITIVE SEIZURES
  12. LEVETIRACETAM. [Suspect]
     Active Substance: LEVETIRACETAM
     Indication: TEMPORAL LOBE EPILEPSY
     Dosage: 2 GRAM ON DAY THREE, AFTE..
     Route: 042
  13. LACOSAMIDE. [Suspect]
     Active Substance: LACOSAMIDE
     Indication: FOCAL DYSCOGNITIVE SEIZURES
     Dosage: 200 MILLIGRAM, TID THREE TIMES...
     Route: 065
  14. LEVETIRACETAM. [Suspect]
     Active Substance: LEVETIRACETAM
     Indication: TEMPORAL LOBE EPILEPSY
     Dosage: 1000 MILLIGRAM, TID THREE TIMES A DAY; ON DAY ONE, LEVETIRACETAM..
     Route: 065

REACTIONS (1)
  - Drug ineffective [Unknown]
